FAERS Safety Report 9836606 (Version 1)
Quarter: 2013Q4

REPORT INFORMATION
  Report Type: Spontaneous
  Country: US (occurrence: None)
  Receive Date: 20131127
  Receipt Date: 20131127
  Transmission Date: 20140711
  Serious: Yes (Other)
  Sender: FDA-Public Use
  Company Number: 223155

PATIENT
  Age: 40 Year
  Sex: Female

DRUGS (2)
  1. PICATO [Suspect]
     Indication: ACTINIC KERATOSIS
     Dosage: 1 D, NOSE
     Dates: start: 20130731, end: 20130802
  2. HYDROCORTISONE (HYDROCORTISONE) (CREAM) [Concomitant]

REACTIONS (3)
  - Application site pain [None]
  - Application site pain [None]
  - Inappropriate schedule of drug administration [None]
